FAERS Safety Report 9191299 (Version 3)
Quarter: 2013Q2

REPORT INFORMATION
  Report Type: Spontaneous
  Country: US (occurrence: US)
  Receive Date: 20130326
  Receipt Date: 20130606
  Transmission Date: 20140414
  Serious: Yes (Other)
  Sender: FDA-Public Use
  Company Number: US-PFIZER INC-2013094305

PATIENT
  Age: 75 Year
  Sex: Female

DRUGS (2)
  1. ZITHROMAX [Suspect]
     Indication: DYSPNOEA
     Dosage: 250 MG, 1X/DAY
  2. PREDNISONE [Suspect]
     Dosage: UNK

REACTIONS (2)
  - Herpes zoster [Unknown]
  - Off label use [Unknown]
